FAERS Safety Report 4306627-X (Version None)
Quarter: 2004Q1

REPORT INFORMATION
  Report Type: 
  Country: None (occurrence: None)
  Receive Date: 20040225
  Receipt Date: 20031007
  Transmission Date: 20041129
  Serious: No
  Sender: FDA-Public Use
  Company Number: US-BRISTOL-MYERS SQUIBB COMPANY-12426193

PATIENT
  Age: 33 Year
  Sex: Female
  Weight: 89 kg

DRUGS (2)
  1. EXCEDRIN (MIGRAINE) [Suspect]
     Indication: MIGRAINE
     Route: 048
     Dates: start: 20031006, end: 20031007
  2. IMITREX [Concomitant]
     Dates: start: 20031006

REACTIONS (1)
  - FEELING ABNORMAL [None]
